FAERS Safety Report 7871535-4 (Version None)
Quarter: 2011Q4

REPORT INFORMATION
  Report Type: 
  Country: None (occurrence: None)
  Receive Date: 20111029
  Receipt Date: 20110303
  Transmission Date: 20120403
  Serious: No
  Sender: FDA-Public Use
  Company Number: US-AMGEN-USASP2011012133

PATIENT
  Age: 28 Year
  Sex: Male

DRUGS (2)
  1. CELEBREX [Concomitant]
  2. ENBREL [Suspect]
     Indication: ANKYLOSING SPONDYLITIS
     Dosage: 50 MG, Q3WK
     Dates: start: 20020101, end: 20110101

REACTIONS (1)
  - BONE PAIN [None]
